FAERS Safety Report 19611836 (Version 2)
Quarter: 2021Q3

REPORT INFORMATION
  Report Type: Spontaneous
  Country: DE (occurrence: DE)
  Receive Date: 20210727
  Receipt Date: 20210802
  Transmission Date: 20211014
  Serious: Yes (Other)
  Sender: FDA-Public Use
  Company Number: DE-BRISTOL-MYERS SQUIBB COMPANY-BMS-2021-072165

PATIENT
  Age: 78 Year
  Sex: Female
  Weight: 59 kg

DRUGS (3)
  1. ELIQUIS [Suspect]
     Active Substance: APIXABAN
     Dosage: 7.5 MILLIGRAM, QD
     Route: 065
     Dates: start: 202007
  2. ELIQUIS [Suspect]
     Active Substance: APIXABAN
     Dosage: 5 MILLIGRAM, BID
     Route: 065
     Dates: start: 202007
  3. ELIQUIS [Suspect]
     Active Substance: APIXABAN
     Indication: CEREBROVASCULAR ACCIDENT
     Dosage: 5 MILLIGRAM, QD
     Route: 065
     Dates: start: 202007

REACTIONS (14)
  - Anxiety [Unknown]
  - Depression [Unknown]
  - Dizziness [Unknown]
  - Atrial fibrillation [Unknown]
  - Tremor [Unknown]
  - Visual impairment [Unknown]
  - Myalgia [Unknown]
  - Nausea [Unknown]
  - Off label use [Unknown]
  - Anosmia [Unknown]
  - Hypoacusis [Unknown]
  - Skin burning sensation [Unknown]
  - Oral mucosal eruption [Unknown]
  - Ageusia [Unknown]

NARRATIVE: CASE EVENT DATE: 202007
